FAERS Safety Report 4778801-X (Version None)
Quarter: 2005Q3

REPORT INFORMATION
  Report Type: 
  Country: None (occurrence: None)
  Receive Date: 20050922
  Receipt Date: 20050915
  Transmission Date: 20060218
  Serious: Yes (Other)
  Sender: FDA-Public Use
  Company Number: 217773

PATIENT
  Age: 32 Year
  Sex: Female

DRUGS (20)
  1. RITUXAN [Suspect]
     Indication: LYMPHOMA
     Dosage: 530 MG, 1/WEEK, INTRAVENOUS
     Route: 042
     Dates: start: 20041104, end: 20041227
  2. CYCLOPHOSPHAMIDE [Suspect]
     Indication: LYMPHOMA
     Dosage: 1050 MG, Q3W, DAY 1, INTRAVENOUS
     Route: 042
     Dates: start: 20041104, end: 20050223
  3. VINCRISTINE [Suspect]
     Indication: LYMPHOMA
     Dosage: 1.9 MG, Q3W, DAY 1, INTRAVENOUS
     Dates: start: 20041104, end: 20050223
  4. DOXORUBICIN HYDROCHLORIDE [Suspect]
     Indication: LYMPHOMA
     Dosage: 70 MG, Q3W, DAY 1, INTRAVENOUS
     Dates: start: 20041104, end: 20050223
  5. PREDNISONE [Suspect]
     Indication: LYMPHOMA
     Dosage: SEE IMAGE
     Dates: start: 20041104, end: 20050223
  6. BURFEN (IBUPROFEN) [Concomitant]
  7. POLARAMINE [Concomitant]
  8. GASLON N (IRSOGLADINE MALEATE) [Concomitant]
  9. MARZULENE (SODIUM GUALENATE) [Concomitant]
  10. FAMOTIDINE [Concomitant]
  11. LEUPRORELIN ACETATE (LEUPRORELIN ACETATE) [Concomitant]
  12. METOCLOPRAMIDE (METOCLOPRAMIDE HYDROCHLORIDE) [Concomitant]
  13. HYDROXYZINE PAMOATE [Concomitant]
  14. BROTIZOLAM (BROTIZOLAM) [Concomitant]
  15. SENNOSIDE (SENNOSIDES) [Concomitant]
  16. SODIUM PICOSULFATE (SODIUM PICOSULFATE) [Concomitant]
  17. AZULENE SULFONATE OSIDUM (SODIUM GUALENATE) [Concomitant]
  18. CEFCAPENE PIVOXIL HYDROCHLORIDE (CEFCAPENE PIVOXIL HYDROCHLORIDE) [Concomitant]
  19. AMPHOTERICIN B [Concomitant]
  20. COLD MEDICATION (INGREDIENTS (COLD AND SINUS REMEDIES) [Concomitant]

REACTIONS (3)
  - NEUTROPHIL COUNT DECREASED [None]
  - PLATELET COUNT DECREASED [None]
  - WHITE BLOOD CELL COUNT DECREASED [None]
